FAERS Safety Report 11139804 (Version 1)
Quarter: 2015Q2

REPORT INFORMATION
  Report Type: Spontaneous
  Country: US (occurrence: None)
  Receive Date: 20150526
  Receipt Date: 20150526
  Transmission Date: 20150821
  Serious: Yes (Hospitalization)
  Sender: FDA-Public Use
  Company Number: None

PATIENT
  Age: 64 Year
  Sex: Male
  Weight: 59.88 kg

DRUGS (4)
  1. LACTULOSE. [Concomitant]
     Active Substance: LACTULOSE
  2. ATENOLOL. [Concomitant]
     Active Substance: ATENOLOL
  3. METHADONE [Concomitant]
     Active Substance: METHADONE HYDROCHLORIDE
  4. HARVONI [Suspect]
     Active Substance: LEDIPASVIR\SOFOSBUVIR
     Indication: HEPATITIS C
     Route: 048
     Dates: start: 20150203, end: 20150427

REACTIONS (2)
  - Chest pain [None]
  - Bronchitis [None]

NARRATIVE: CASE EVENT DATE: 20150313
